FAERS Safety Report 21705358 (Version 1)
Quarter: 2022Q4

REPORT INFORMATION
  Report Type: Spontaneous
  Country: US (occurrence: US)
  Receive Date: 20221209
  Receipt Date: 20221209
  Transmission Date: 20230113
  Serious: No
  Sender: FDA-Public Use
  Company Number: US-SA-SAC20221207001311

PATIENT
  Age: 82 Year
  Sex: Male

DRUGS (20)
  1. PLAVIX [Suspect]
     Active Substance: CLOPIDOGREL BISULFATE
     Indication: Prostate cancer
     Dosage: UNK
  2. ORGOVYX [Suspect]
     Active Substance: RELUGOLIX
     Dosage: 300 MG, QD
     Route: 048
     Dates: start: 20220902
  3. ORGOVYX [Suspect]
     Active Substance: RELUGOLIX
     Dosage: 120 MG
     Route: 048
     Dates: start: 20220903
  4. CALCIUM [Concomitant]
     Active Substance: CALCIUM
  5. CANNABIDIOL [Concomitant]
     Active Substance: CANNABIDIOL
  6. COBAMAMIDE [Concomitant]
     Active Substance: COBAMAMIDE
  7. CHOLECALCIFEROL [Concomitant]
     Active Substance: CHOLECALCIFEROL
  8. FISH OIL [Concomitant]
     Active Substance: FISH OIL
  9. FOLIC ACID [Concomitant]
     Active Substance: FOLIC ACID
  10. LEVOTHYROXINE [Concomitant]
     Active Substance: LEVOTHYROXINE
  11. LEXAPRO [Concomitant]
     Active Substance: ESCITALOPRAM OXALATE
  12. MELATONIN [Concomitant]
     Active Substance: MELATONIN
  13. VITAMINS NOS [Concomitant]
     Active Substance: VITAMINS
  14. VITAMIN B6 [Concomitant]
     Active Substance: PYRIDOXINE HYDROCHLORIDE
  15. VITAMIN C [Concomitant]
     Active Substance: ASCORBIC ACID
  16. MYRBETRIQ [Concomitant]
     Active Substance: MIRABEGRON
  17. TADALAFIL [Concomitant]
     Active Substance: TADALAFIL
  18. PROBIOTICS NOS;PYRIDOXINE [Concomitant]
  19. ZINC [Concomitant]
     Active Substance: ZINC
  20. ZIOPTAN [Concomitant]
     Active Substance: TAFLUPROST

REACTIONS (3)
  - Dizziness [Recovered/Resolved]
  - Balance disorder [Recovered/Resolved]
  - Fall [Recovered/Resolved]
